FAERS Safety Report 24132423 (Version 1)
Quarter: 2024Q3

REPORT INFORMATION
  Report Type: Spontaneous
  Country: US (occurrence: US)
  Receive Date: 20240724
  Receipt Date: 20240724
  Transmission Date: 20241016
  Serious: Yes (Hospitalization)
  Sender: PFIZER
  Company Number: US-BRISTOL-MYERS SQUIBB COMPANY-2024-111575

PATIENT
  Age: 86 Year
  Sex: Female
  Weight: 62.6 kg

DRUGS (3)
  1. ELIQUIS [Suspect]
     Active Substance: APIXABAN
     Indication: Deep vein thrombosis
     Dosage: 2.5 MG, 2X/DAY (90 TABLET REFILL:3)
     Route: 048
  2. ELIQUIS [Suspect]
     Active Substance: APIXABAN
     Indication: Atrial fibrillation
  3. VYNDAMAX [Suspect]
     Active Substance: TAFAMIDIS
     Dosage: 61 MG, 1X/DAY (QUANTITY #30 CAPSULES (30 DAYS). REFILLS # 11)
     Route: 048

REACTIONS (2)
  - Left ventricular hypertrophy [Unknown]
  - Epistaxis [Unknown]
